FAERS Safety Report 10573639 (Version 1)
Quarter: 2014Q4

REPORT INFORMATION
  Report Type: Spontaneous
  Country: PR (occurrence: PR)
  Receive Date: 20141110
  Receipt Date: 20141110
  Transmission Date: 20150529
  Serious: Yes (Death, Hospitalization)
  Sender: FDA-Public Use
  Company Number: PR-BAXTER-2014BAX066362

PATIENT
  Age: 67 Year
  Sex: Male

DRUGS (8)
  1. OSELTAMIVIR [Suspect]
     Active Substance: OSELTAMIVIR
     Indication: INFECTION
     Route: 065
  2. LEVOFLOXACIN. [Suspect]
     Active Substance: LEVOFLOXACIN
     Indication: INFECTION
     Route: 065
  3. CEFTRIAXONE INJECTION, USP GALAXY SINGLE DOSE CONTAINER [Suspect]
     Active Substance: CEFTRIAXONE
     Indication: INFECTION
     Route: 065
  4. FLEXBUMIN 25% [Suspect]
     Active Substance: ALBUMIN (HUMAN)
     Indication: THROMBOCYTOPENIA
     Route: 065
  5. VANCOMYCIN, HYDROCHLORIDE_VANCOMYCIN, HYDROCHLORIDE 5.00 MG/ML_SOLUTIO [Suspect]
     Active Substance: VANCOMYCIN HYDROCHLORIDE
     Indication: INFECTION
     Route: 065
  6. 0.45% NORMAL SALINE [Concomitant]
     Indication: FLUID REPLACEMENT
     Route: 040
  7. METHYLPREDNISOLONE. [Concomitant]
     Active Substance: METHYLPREDNISOLONE
     Indication: ADVERSE EVENT
     Route: 065
     Dates: start: 201207
  8. AZITHROMYCIN [Suspect]
     Active Substance: AZITHROMYCIN ANHYDROUS
     Indication: ADVERSE EVENT
     Dosage: ON HOSPITAL DAY 2
     Route: 065
     Dates: start: 201207

REACTIONS (8)
  - Renal impairment [Not Recovered/Not Resolved]
  - Viral infection [Fatal]
  - Weil^s disease [None]
  - Thrombocytopenia [Not Recovered/Not Resolved]
  - Cardiac arrest [Not Recovered/Not Resolved]
  - Respiratory failure [None]
  - Metabolic acidosis [None]
  - Multi-organ failure [Fatal]
